FAERS Safety Report 6480034-6 (Version None)
Quarter: 2009Q4

REPORT INFORMATION
  Report Type: 
  Country: None (occurrence: None)
  Receive Date: 20091208
  Receipt Date: 20091130
  Transmission Date: 20100525
  Serious: Yes (Hospitalization, Other)
  Sender: FDA-Public Use
  Company Number: FR-ROCHE-672679

PATIENT
  Age: 24 Month
  Sex: Male

DRUGS (5)
  1. MYCOPHENOLATE MOFETIL [Suspect]
     Dosage: DOSE: 40 MG/KG/DAY, 500 MG/M2 TWICE DAY, WITH A RECENT MMF AREA UNDER CURVE AT 47.8 MG X H/L
     Route: 065
  2. MYCOPHENOLATE MOFETIL [Suspect]
     Dosage: INCREASED DOSES
     Route: 065
  3. MYCOPHENOLATE MOFETIL [Suspect]
     Dosage: DOSE REDUCED
     Route: 065
  4. PREDNISONE [Suspect]
     Route: 065
  5. TACROLIMUS [Suspect]
     Dosage: RESIDUAL LEVEL 11 UG/L
     Route: 065

REACTIONS (4)
  - ABDOMINAL PAIN [None]
  - CHRONIC ALLOGRAFT NEPHROPATHY [None]
  - CRYPTOSPORIDIOSIS INFECTION [None]
  - RENAL FAILURE ACUTE [None]
